FAERS Safety Report 8392784-5 (Version None)
Quarter: 2012Q2

REPORT INFORMATION
  Report Type: 
  Country: None (occurrence: None)
  Receive Date: 20120525
  Receipt Date: 20120525
  Transmission Date: 20120825
  Serious: Yes (Other)
  Sender: FDA-Public Use
  Company Number: None

PATIENT
  Age: 46 Year
  Sex: Female
  Weight: 61.2356 kg

DRUGS (1)
  1. QUETIAPINE [Suspect]
     Indication: INSOMNIA
     Dosage: 100 MG ONCE QHS PO
     Route: 048
     Dates: start: 20120401, end: 20120516

REACTIONS (5)
  - PRODUCT SUBSTITUTION ISSUE [None]
  - DISEASE RECURRENCE [None]
  - ANXIETY [None]
  - INSOMNIA [None]
  - POOR QUALITY SLEEP [None]
